FAERS Safety Report 11695448 (Version 1)
Quarter: 2015Q4

REPORT INFORMATION
  Report Type: Report from Study
  Country: US (occurrence: US)
  Receive Date: 20151104
  Receipt Date: 20151104
  Transmission Date: 20160304
  Serious: Yes (Hospitalization)
  Sender: FDA-Public Use
  Company Number: US-ROCHE-1653873

PATIENT
  Age: 74 Year
  Sex: Male
  Weight: 113.27 kg

DRUGS (16)
  1. SAW PALMETTO [Concomitant]
     Active Substance: SAW PALMETTO
  2. ALEVE [Concomitant]
     Active Substance: NAPROXEN SODIUM
  3. TYLENOL [Concomitant]
     Active Substance: ACETAMINOPHEN
  4. HYDROCODONE/APAP [Concomitant]
     Active Substance: ACETAMINOPHEN\HYDROCODONE BITARTRATE
  5. AVODART [Concomitant]
     Active Substance: DUTASTERIDE
  6. METOPROLOL SUCCINATE. [Concomitant]
     Active Substance: METOPROLOL SUCCINATE
  7. LEVAQUIN [Concomitant]
     Active Substance: LEVOFLOXACIN
  8. FUROSEMIDE. [Concomitant]
     Active Substance: FUROSEMIDE
  9. LEVOTHYROXINE. [Concomitant]
     Active Substance: LEVOTHYROXINE
  10. METOLAZONE. [Concomitant]
     Active Substance: METOLAZONE
  11. ZYRTEC [Concomitant]
     Active Substance: CETIRIZINE HYDROCHLORIDE
  12. VEMURAFENIB [Suspect]
     Active Substance: VEMURAFENIB
     Indication: THYROID CANCER METASTATIC
     Route: 048
     Dates: start: 20151008, end: 20151015
  13. CARDURA [Concomitant]
     Active Substance: DOXAZOSIN MESYLATE
  14. LOVENOX [Concomitant]
     Active Substance: ENOXAPARIN SODIUM
  15. TAMSULOSIN [Concomitant]
     Active Substance: TAMSULOSIN
  16. IBUPROFEN. [Concomitant]
     Active Substance: IBUPROFEN

REACTIONS (3)
  - Cardiac failure [Unknown]
  - Atrial fibrillation [Unknown]
  - Renal failure [Unknown]

NARRATIVE: CASE EVENT DATE: 20151024
